FAERS Safety Report 6496990-6 (Version None)
Quarter: 2009Q4

REPORT INFORMATION
  Report Type: 
  Country: None (occurrence: None)
  Receive Date: 20091215
  Receipt Date: 20081204
  Transmission Date: 20100525
  Serious: No
  Sender: FDA-Public Use
  Company Number: A0759298A

PATIENT
  Age: 58 Year
  Sex: Male

DRUGS (3)
  1. AVODART [Suspect]
     Indication: BENIGN PROSTATIC HYPERPLASIA
     Dosage: .5MG PER DAY
     Route: 048
     Dates: start: 20080901, end: 20081101
  2. UROXATRAL [Concomitant]
  3. MULTI-VITAMIN [Concomitant]

REACTIONS (1)
  - TINNITUS [None]
